FAERS Safety Report 16621770 (Version 2)
Quarter: 2019Q3

REPORT INFORMATION
  Report Type: Spontaneous
  Country: PL (occurrence: PL)
  Receive Date: 20190723
  Receipt Date: 20190918
  Transmission Date: 20191004
  Serious: Yes (Hospitalization, Other)
  Sender: FDA-Public Use
  Company Number: PL-ARBOR PHARMACEUTICALS, LLC-PL-2019ARB001159

PATIENT
  Age: 34 Year
  Sex: Female

DRUGS (17)
  1. HUMAN SERUM ALBUMIN [Concomitant]
     Active Substance: ALBUMIN HUMAN
     Indication: PRODUCT USED FOR UNKNOWN INDICATION
     Dosage: UNK
  2. CABERGOLINE. [Concomitant]
     Active Substance: CABERGOLINE
     Dosage: 0.5 MG, QD
  3. ENOXAPARIN SODIUM. [Concomitant]
     Active Substance: ENOXAPARIN SODIUM
     Indication: CONTROLLED OVARIAN STIMULATION
     Dosage: UNK
  4. ENOXAPARIN SODIUM. [Concomitant]
     Active Substance: ENOXAPARIN SODIUM
     Dosage: UNK
  5. LEVOTHYROXINE SODIUM. [Concomitant]
     Active Substance: LEVOTHYROXINE SODIUM
     Dosage: 50 ?G, QD
  6. TRIPTODUR [Suspect]
     Active Substance: TRIPTORELIN
     Indication: IN VITRO FERTILISATION
     Dosage: 0.1 MG, QD
     Route: 065
  7. FOLLICLE STIMULATING HORMONE, RECOMBINANT [Suspect]
     Active Substance: FOLLITROPIN
     Indication: OVULATION INDUCTION
     Dosage: 1075 IU, QD
  8. HUMAN CHORIONIC GONADOTROPIN [Suspect]
     Active Substance: GONADOTROPHIN, CHORIONIC
     Indication: IN VITRO FERTILISATION
     Dosage: 125 ?G, UNK
  9. HETASTARCH. [Concomitant]
     Active Substance: HETASTARCH
     Indication: PRODUCT USED FOR UNKNOWN INDICATION
     Dosage: UNK
  10. CABERGOLINE. [Concomitant]
     Active Substance: CABERGOLINE
     Indication: OVARIAN HYPERSTIMULATION SYNDROME
     Dosage: 0.5 MG, 1 WK
     Route: 064
  11. IODINE. [Concomitant]
     Active Substance: IODINE
     Indication: PRODUCT USED FOR UNKNOWN INDICATION
     Dosage: 200 MG, QD
  12. ACETIC ACID. [Concomitant]
     Active Substance: ACETIC ACID
     Indication: CONTROLLED OVARIAN STIMULATION
     Dosage: UNK
  13. PROGESTERONE. [Concomitant]
     Active Substance: PROGESTERONE
     Indication: PRODUCT USED FOR UNKNOWN INDICATION
     Dosage: UNK
     Route: 067
  14. FOLIC ACID. [Concomitant]
     Active Substance: FOLIC ACID
     Indication: CONTROLLED OVARIAN STIMULATION
     Dosage: UNK
  15. LEVOTHYROXINE SODIUM. [Concomitant]
     Active Substance: LEVOTHYROXINE SODIUM
     Indication: HYPOTHYROIDISM
     Dosage: 25 ?G, QD
  16. LEVOTHYROXINE SODIUM. [Concomitant]
     Active Substance: LEVOTHYROXINE SODIUM
     Dosage: 37.5 ?G, QD
  17. PREDNISONE. [Concomitant]
     Active Substance: PREDNISONE
     Indication: CONTROLLED OVARIAN STIMULATION
     Dosage: UNK

REACTIONS (1)
  - Ovarian hyperstimulation syndrome [Recovered/Resolved]
